FAERS Safety Report 7562484-X (Version None)
Quarter: 2011Q2

REPORT INFORMATION
  Report Type: 
  Country: None (occurrence: None)
  Receive Date: 20110621
  Receipt Date: 20110621
  Transmission Date: 20111010
  Serious: No
  Sender: FDA-Public Use
  Company Number: None

PATIENT
  Sex: Female

DRUGS (18)
  1. SINGULAIR [Concomitant]
  2. ALOCLEAR [Concomitant]
  3. LEVOTHYROXINE SODIUM [Concomitant]
  4. NORVASC [Concomitant]
  5. LOPRESSOR [Concomitant]
  6. PLAVIX [Concomitant]
  7. HYDROZINE [Concomitant]
  8. VITAMIN B3 [Concomitant]
  9. LEVAMIR [Concomitant]
  10. ASPIRIN [Concomitant]
  11. FERROUS SULFATE TAB [Concomitant]
  12. MULTI-MINERAL [Concomitant]
  13. CALCIUM CARBONATE [Concomitant]
  14. FUROSEMIDE [Concomitant]
  15. FLUTICASONE PROPIONATE [Concomitant]
  16. VYTORIN [Suspect]
     Indication: BLOOD CHOLESTEROL
     Dosage: ONE DAILY PO
     Route: 048
     Dates: start: 20110425, end: 20110525
  17. NITROGLYCERIN [Concomitant]
  18. MULTI-VITAMIN [Concomitant]

REACTIONS (4)
  - MUSCLE DISORDER [None]
  - GAIT DISTURBANCE [None]
  - MUSCULAR WEAKNESS [None]
  - MOVEMENT DISORDER [None]
